FAERS Safety Report 20300209 (Version 2)
Quarter: 2025Q3

REPORT INFORMATION
  Report Type: Report from Study
  Country: US (occurrence: US)
  Receive Date: 20220105
  Receipt Date: 20250725
  Transmission Date: 20251021
  Serious: No
  Sender: KYOWA
  Company Number: US-KYOWAKIRIN-2021BKK021841

PATIENT

DRUGS (2)
  1. CRYSVITA [Suspect]
     Active Substance: BUROSUMAB-TWZA
     Indication: Hereditary hypophosphataemic rickets
     Dosage: 20 MG (1 ML), EVERY 14 DAYS
     Route: 058
  2. CRYSVITA [Suspect]
     Active Substance: BUROSUMAB-TWZA
     Dosage: 20 MG, 1X/2 WEEKS
     Route: 058
     Dates: start: 201809

REACTIONS (6)
  - Anxiety [Unknown]
  - Fatigue [Recovering/Resolving]
  - Pain [Recovering/Resolving]
  - Vitamin D decreased [Unknown]
  - Constipation [Unknown]
  - Product dose omission issue [Unknown]

NARRATIVE: CASE EVENT DATE: 20250101
